FAERS Safety Report 19699749 (Version 18)
Quarter: 2025Q1

REPORT INFORMATION
  Report Type: Report from Study
  Country: US (occurrence: US)
  Receive Date: 20210813
  Receipt Date: 20250205
  Transmission Date: 20250408
  Serious: Yes (Hospitalization, Other)
  Sender: TAKEDA
  Company Number: US-TAKEDA-US201931101

PATIENT
  Age: 63 Year
  Sex: Female
  Weight: 94 kg

DRUGS (58)
  1. HUMAN IMMUNOGLOBULIN G [Suspect]
     Active Substance: HUMAN IMMUNOGLOBULIN G
     Indication: Primary immunodeficiency syndrome
     Dosage: 30 GRAM, Q4WEEKS
     Dates: start: 20200925
  2. HUMAN IMMUNOGLOBULIN G [Suspect]
     Active Substance: HUMAN IMMUNOGLOBULIN G
     Indication: Selective IgG subclass deficiency
     Dosage: 30 GRAM, Q4WEEKS
     Dates: start: 20201102
  3. HUMAN IMMUNOGLOBULIN G [Suspect]
     Active Substance: HUMAN IMMUNOGLOBULIN G
     Indication: Immune system disorder
     Dosage: 30 GRAM, Q4WEEKS
  4. DIPHENHYDRAMINE HYDROCHLORIDE [Concomitant]
     Active Substance: DIPHENHYDRAMINE HYDROCHLORIDE
  5. NITROSTAT [Concomitant]
     Active Substance: NITROGLYCERIN
  6. SODIUM CHLORIDE [Concomitant]
     Active Substance: SODIUM CHLORIDE
  7. EPINEPHRINE [Concomitant]
     Active Substance: EPINEPHRINE
  8. ATORVASTATIN CALCIUM [Concomitant]
     Active Substance: ATORVASTATIN CALCIUM
  9. SYNTHROID [Concomitant]
     Active Substance: LEVOTHYROXINE SODIUM
  10. METOPROLOL TARTRATE [Concomitant]
     Active Substance: METOPROLOL TARTRATE
  11. PLAQUENIL [Concomitant]
     Active Substance: HYDROXYCHLOROQUINE SULFATE
  12. LASIX [Concomitant]
     Active Substance: FUROSEMIDE
  13. GABAPENTIN [Concomitant]
     Active Substance: GABAPENTIN
  14. ACETAMINOPHEN [Concomitant]
     Active Substance: ACETAMINOPHEN
  15. ESTRACE [Concomitant]
     Active Substance: ESTRADIOL
  16. URSODIOL [Concomitant]
     Active Substance: URSODIOL
  17. ESZOPICLONE [Concomitant]
     Active Substance: ESZOPICLONE
  18. NALTREXONE HYDROCHLORIDE [Concomitant]
     Active Substance: NALTREXONE HYDROCHLORIDE
  19. FLONASE ALLERGY RELIEF [Concomitant]
     Active Substance: FLUTICASONE PROPIONATE
  20. DICYCLOMINE HYDROCHLORIDE [Concomitant]
     Active Substance: DICYCLOMINE HYDROCHLORIDE
  21. FOLIC ACID [Concomitant]
     Active Substance: FOLIC ACID
  22. FAMOTIDINE [Concomitant]
     Active Substance: FAMOTIDINE
  23. PROMETHAZINE HYDROCHLORIDE [Concomitant]
     Active Substance: PROMETHAZINE HYDROCHLORIDE
  24. VITAMIN D3 [Concomitant]
     Active Substance: CHOLECALCIFEROL
  25. SODIUM CHLORIDE [Concomitant]
     Active Substance: SODIUM CHLORIDE
  26. ZOLOFT [Concomitant]
     Active Substance: SERTRALINE HYDROCHLORIDE
  27. HYDROXYZINE HYDROCHLORIDE [Concomitant]
     Active Substance: HYDROXYZINE HYDROCHLORIDE
  28. FROVATRIPTAN SUCCINATE [Concomitant]
     Active Substance: FROVATRIPTAN SUCCINATE
  29. PLAVIX [Concomitant]
     Active Substance: CLOPIDOGREL BISULFATE
  30. POTASSIUM CHLORIDE [Concomitant]
     Active Substance: POTASSIUM CHLORIDE
  31. VITAMIN B [Concomitant]
     Active Substance: VITAMIN B
  32. LIDOCAINE [Concomitant]
     Active Substance: LIDOCAINE
  33. OZEMPIC [Concomitant]
     Active Substance: SEMAGLUTIDE
  34. NORVASC [Concomitant]
     Active Substance: AMLODIPINE BESYLATE
  35. TRAZODONE HCL [Concomitant]
     Active Substance: TRAZODONE HYDROCHLORIDE
  36. DONEPEZIL HYDROCHLORIDE [Concomitant]
     Active Substance: DONEPEZIL HYDROCHLORIDE
  37. PROZAC [Concomitant]
     Active Substance: FLUOXETINE HYDROCHLORIDE
  38. CELEBREX [Concomitant]
     Active Substance: CELECOXIB
  39. FENOFIBRATE [Concomitant]
     Active Substance: FENOFIBRATE
  40. VITAMIN B12 [Concomitant]
     Active Substance: CYANOCOBALAMIN
  41. PREDNISONE [Concomitant]
     Active Substance: PREDNISONE
  42. BUSPIRONE HCL [Concomitant]
     Active Substance: BUSPIRONE HYDROCHLORIDE
  43. METHOTREXATE [Concomitant]
     Active Substance: METHOTREXATE
  44. EMGALITY [Concomitant]
     Active Substance: GALCANEZUMAB-GNLM
  45. CYMBALTA [Concomitant]
     Active Substance: DULOXETINE HYDROCHLORIDE
  46. DONEPEZIL [Concomitant]
     Active Substance: DONEPEZIL
  47. HIZENTRA [Concomitant]
     Active Substance: HUMAN IMMUNOGLOBULIN G
  48. FENOFIBRATE [Concomitant]
     Active Substance: FENOFIBRATE
  49. SERTRALINE [Concomitant]
     Active Substance: SERTRALINE HYDROCHLORIDE
  50. BACLOFEN [Concomitant]
     Active Substance: BACLOFEN
  51. MEMANTINE [Concomitant]
     Active Substance: MEMANTINE
  52. HYDROXYCHLOROQUINE [Concomitant]
     Active Substance: HYDROXYCHLOROQUINE
  53. PREGABALIN [Concomitant]
     Active Substance: PREGABALIN
  54. SERTRALINE HYDROCHLORIDE [Concomitant]
     Active Substance: SERTRALINE HYDROCHLORIDE
  55. MEMANTINE [Concomitant]
     Active Substance: MEMANTINE
  56. HYDROXYCHLOROQUINE SULFATE [Concomitant]
     Active Substance: HYDROXYCHLOROQUINE SULFATE
  57. NORTRIPTYLINE HYDROCHLORIDE [Concomitant]
     Active Substance: NORTRIPTYLINE HYDROCHLORIDE
  58. PROCHLORPERAZINE MALEATE [Concomitant]
     Active Substance: PROCHLORPERAZINE MALEATE

REACTIONS (20)
  - Malignant melanoma [Unknown]
  - Kidney infection [Unknown]
  - Illness [Unknown]
  - COVID-19 [Recovered/Resolved]
  - Allergic cough [Unknown]
  - Oral infection [Unknown]
  - Tenderness [Unknown]
  - Tooth disorder [Unknown]
  - Escherichia urinary tract infection [Unknown]
  - Insurance issue [Unknown]
  - Urinary tract infection [Unknown]
  - Product dose omission issue [Unknown]
  - Product use issue [Unknown]
  - Bronchitis [Not Recovered/Not Resolved]
  - Ear infection [Unknown]
  - Sinusitis [Not Recovered/Not Resolved]
  - Pain [Unknown]
  - Abdominal pain upper [Unknown]
  - Arthralgia [Unknown]
  - Influenza [Unknown]

NARRATIVE: CASE EVENT DATE: 20210721
